FAERS Safety Report 12787703 (Version 2)
Quarter: 2016Q4

REPORT INFORMATION
  Report Type: Spontaneous
  Country: US (occurrence: US)
  Receive Date: 20160928
  Receipt Date: 20161018
  Transmission Date: 20170207
  Serious: No
  Sender: FDA-Public Use
  Company Number: US-GLAXOSMITHKLINE-US2016139332

PATIENT
  Sex: Female
  Weight: 51.25 kg

DRUGS (2)
  1. SORIATANE [Concomitant]
     Active Substance: ACITRETIN
     Dosage: UNK
     Dates: start: 2014
  2. ACITRETIN. [Suspect]
     Active Substance: ACITRETIN
     Indication: SQUAMOUS CELL CARCINOMA
     Dosage: 25 MG, UNK
     Route: 048
     Dates: start: 20090414, end: 20090629

REACTIONS (5)
  - Pruritus [Unknown]
  - Nausea [Unknown]
  - Urticaria [Unknown]
  - Vomiting [Unknown]
  - Rash [Unknown]
